FAERS Safety Report 8872559 (Version 1)
Quarter: 2012Q4

REPORT INFORMATION
  Report Type: Spontaneous
  Country: DK (occurrence: None)
  Receive Date: 20121024
  Receipt Date: 20121024
  Transmission Date: 20130627
  Serious: Yes (Hospitalization)
  Sender: FDA-Public Use
  Company Number: 2012MA012587

PATIENT
  Age: 1 Year
  Sex: Male

DRUGS (3)
  1. DIAZEPAM [Suspect]
     Indication: CONVULSIVE SEIZURE
     Route: 054
     Dates: start: 20120825, end: 20120826
  2. PHENOBARBITAL [Suspect]
     Indication: CONVULSIVE SEIZURE
     Route: 048
     Dates: start: 20120828, end: 20120915
  3. TRIMETHOPRIM/SULFAMETHOXAZOLE [Suspect]
     Indication: RECURRENT URINARY TRACT INFECTION
     Route: 048
     Dates: start: 20120831, end: 20120908

REACTIONS (12)
  - Rash pruritic [None]
  - Rash maculo-papular [None]
  - Rash generalised [None]
  - Blister [None]
  - Oedema peripheral [None]
  - Oedema peripheral [None]
  - Oedema peripheral [None]
  - Scab [None]
  - Skin exfoliation [None]
  - Pruritus generalised [None]
  - Alanine aminotransferase increased [None]
  - Eosinophilia [None]
